FAERS Safety Report 21784247 (Version 1)
Quarter: 2022Q4

REPORT INFORMATION
  Report Type: Spontaneous
  Country: BR (occurrence: BR)
  Receive Date: 20221227
  Receipt Date: 20221227
  Transmission Date: 20230112
  Serious: Yes (Hospitalization)
  Sender: FDA-Public Use
  Company Number: BR-GLAXOSMITHKLINE-BRCH2022AMR051688

PATIENT

DRUGS (4)
  1. IBUPROFEN [Suspect]
     Active Substance: IBUPROFEN
     Indication: Analgesic therapy
     Dosage: UNK, 2 WEEKS
  2. IBUPROFEN [Suspect]
     Active Substance: IBUPROFEN
     Indication: Endometriosis
  3. KETOPROFEN [Suspect]
     Active Substance: KETOPROFEN
     Indication: Analgesic therapy
     Dosage: UNK, 2 WEEKS
  4. KETOPROFEN [Suspect]
     Active Substance: KETOPROFEN
     Indication: Endometriosis

REACTIONS (16)
  - Pruritus [Recovering/Resolving]
  - Erythema [Recovering/Resolving]
  - Arthralgia [Recovering/Resolving]
  - Musculoskeletal stiffness [Recovering/Resolving]
  - Skin lesion [Recovering/Resolving]
  - Psoriasis [Recovering/Resolving]
  - Rash maculo-papular [Recovering/Resolving]
  - Skin oedema [Recovering/Resolving]
  - Skin exfoliation [Recovering/Resolving]
  - Skin fissures [Recovering/Resolving]
  - Onychoclasis [Recovering/Resolving]
  - Hyperkeratosis [Recovering/Resolving]
  - Parakeratosis [Recovering/Resolving]
  - Acanthosis [Recovering/Resolving]
  - Eczema [Recovering/Resolving]
  - Papilloma [Recovering/Resolving]
